FAERS Safety Report 7992485-9 (Version None)
Quarter: 2011Q4

REPORT INFORMATION
  Report Type: 
  Country: None (occurrence: None)
  Receive Date: 20111219
  Receipt Date: 20111215
  Transmission Date: 20120403
  Serious: Yes (Death, Other)
  Sender: FDA-Public Use
  Company Number: PHEH2010US00462

PATIENT
  Sex: Male
  Weight: 108.84 kg

DRUGS (24)
  1. DROPERIDOL [Concomitant]
  2. PROPOFOL [Concomitant]
  3. CLINDAMYCIN [Concomitant]
     Dosage: 150 MG, QD
  4. DILAUDID [Concomitant]
     Dosage: 4 MG, UNK
  5. AREDIA [Suspect]
     Dates: start: 20040102, end: 20050601
  6. SUNITINIB MALATE [Concomitant]
     Dosage: 25 MG, QD
  7. METROGEL [Concomitant]
  8. MAGNESIUM CITRATE [Concomitant]
  9. MS CONTIN [Concomitant]
     Dosage: 30 MG, TID
  10. ZOMETA [Suspect]
     Indication: METASTASES TO BONE
     Dosage: 4 MG, QMO
     Route: 042
     Dates: start: 20031006, end: 20031201
  11. ACETAMINOPHEN [Concomitant]
     Indication: PYREXIA
  12. LEVOTHYROXINE SODIUM [Concomitant]
     Dosage: 0.1 MG, QD
     Route: 048
  13. FENTANYL [Concomitant]
  14. DOXYCYCLINE [Concomitant]
  15. ZOMETA [Suspect]
     Dosage: 3 MG, MONTHLY
     Dates: start: 20050701
  16. ACETAMINOPHEN [Concomitant]
     Indication: HEADACHE
  17. HYDROCHLOROTHIAZIDE [Concomitant]
     Dosage: 25 MG, QD
  18. LOSARTAN POTASSIUM [Concomitant]
     Dosage: 100 MG, QD
  19. SYNTHROID [Concomitant]
  20. AVAPRO [Concomitant]
     Dosage: 150 MG, BID
     Route: 048
  21. BENADRYL [Concomitant]
     Indication: INSOMNIA
     Dosage: 25 MG, QH
     Route: 048
  22. FERROUS SULFATE TAB [Concomitant]
  23. CLONIDINE [Concomitant]
     Dosage: 0.2 MG, QD
  24. MORPHINE SULFATE [Concomitant]
     Dosage: 30 MG, 2 EVERY 8 HOURS

REACTIONS (35)
  - DEATH [None]
  - DECREASED INTEREST [None]
  - PHYSICAL DISABILITY [None]
  - HAEMOPTYSIS [None]
  - CONJUNCTIVITIS [None]
  - BREAST TENDERNESS [None]
  - PAIN [None]
  - NEPHROLITHIASIS [None]
  - DYSPNOEA [None]
  - DENTAL CARIES [None]
  - OSTEONECROSIS OF JAW [None]
  - HYPOKALAEMIA [None]
  - TOOTH ABSCESS [None]
  - GENERAL PHYSICAL HEALTH DETERIORATION [None]
  - CONSTIPATION [None]
  - EXPOSED BONE IN JAW [None]
  - OSTEOPOROSIS [None]
  - RENAL CYST [None]
  - OSTEOMYELITIS [None]
  - URETHRAL OBSTRUCTION [None]
  - PLEURAL EFFUSION [None]
  - ASTHENIA [None]
  - ANXIETY [None]
  - URETHRAL STENOSIS [None]
  - LUNG NEOPLASM [None]
  - STOMATITIS [None]
  - URINARY RETENTION [None]
  - PAPILLOMA VIRAL INFECTION [None]
  - SINUS BRADYCARDIA [None]
  - GYNAECOMASTIA [None]
  - GAIT DISTURBANCE [None]
  - CARDIOMEGALY [None]
  - LYMPHADENOPATHY [None]
  - CHOLELITHIASIS [None]
  - OEDEMA PERIPHERAL [None]
